FAERS Safety Report 9266700 (Version 1)
Quarter: 2013Q2

REPORT INFORMATION
  Report Type: Spontaneous
  Country: US (occurrence: US)
  Receive Date: 20130502
  Receipt Date: 20130502
  Transmission Date: 20140414
  Serious: Yes (Other)
  Sender: FDA-Public Use
  Company Number: US-NOVOPROD-376506

PATIENT
  Age: 9 Year
  Sex: Female
  Weight: 23 kg

DRUGS (8)
  1. NORDITROPIN FLEXPRO 3.3 MG/ML [Suspect]
     Indication: GROWTH HORMONE DEFICIENCY
     Dosage: UNK
     Route: 058
     Dates: start: 201110, end: 20130401
  2. LEVOTHYROXINE [Concomitant]
     Indication: PRODUCT USED FOR UNKNOWN INDICATION
     Dosage: 37.5 UG QD
     Route: 048
  3. RANITIDINE [Concomitant]
     Indication: PRODUCT USED FOR UNKNOWN INDICATION
     Dosage: 75 MG BID
     Route: 048
  4. ONDANSETRON [Concomitant]
     Indication: NAUSEA
     Dosage: PRN
     Route: 048
  5. DOCUSATE SODIUM [Concomitant]
     Indication: PRODUCT USED FOR UNKNOWN INDICATION
     Dosage: PRN
     Route: 048
  6. ENSURE                             /07421001/ [Concomitant]
     Indication: PRODUCT USED FOR UNKNOWN INDICATION
     Dosage: UNK
     Route: 048
  7. TUMS                               /00193601/ [Concomitant]
     Indication: PRODUCT USED FOR UNKNOWN INDICATION
     Dosage: PRN
     Route: 048
  8. ARTIFICIAL TEARS                   /00445101/ [Concomitant]
     Indication: DRY EYE
     Dosage: PRN
     Route: 050

REACTIONS (2)
  - Atypical teratoid/rhabdoid tumour of CNS [Not Recovered/Not Resolved]
  - Disease progression [Not Recovered/Not Resolved]
